FAERS Safety Report 8330364-8 (Version None)
Quarter: 2012Q2

REPORT INFORMATION
  Report Type: 
  Country: None (occurrence: None)
  Receive Date: 20120502
  Receipt Date: 20120419
  Transmission Date: 20120825
  Serious: Yes (Other)
  Sender: FDA-Public Use
  Company Number: IT-MYLANLABS-2012S1008319

PATIENT
  Age: 65 Year
  Sex: Female

DRUGS (6)
  1. CHLORPHENIRAMINE MALEATE [Concomitant]
     Indication: PRODUCT USED FOR UNKNOWN INDICATION
  2. SOLU-CORTEF [Concomitant]
     Indication: PRODUCT USED FOR UNKNOWN INDICATION
  3. DEXAMETHASONE [Concomitant]
     Indication: PRODUCT USED FOR UNKNOWN INDICATION
  4. CARBOPLATIN [Concomitant]
     Indication: PRODUCT USED FOR UNKNOWN INDICATION
     Dates: start: 20120227, end: 20120321
  5. PACLITAXEL [Suspect]
     Indication: ENDOMETRIAL CANCER
     Dosage: CYCLIC ADMINISTRATION
     Route: 042
     Dates: start: 20120227, end: 20120321
  6. RANIDIL [Concomitant]
     Indication: PRODUCT USED FOR UNKNOWN INDICATION

REACTIONS (2)
  - BRONCHOSPASM [None]
  - FEELING HOT [None]
